FAERS Safety Report 13587833 (Version 4)
Quarter: 2017Q2

REPORT INFORMATION
  Report Type: Spontaneous
  Country: IT (occurrence: IT)
  Receive Date: 20170527
  Receipt Date: 20170619
  Transmission Date: 20170830
  Serious: Yes (Life-Threatening, Hospitalization, Other)
  Sender: FDA-Public Use
  Company Number: IT-BRISTOL-MYERS SQUIBB COMPANY-BMS-2017-043044

PATIENT
  Age: 74 Year
  Sex: Male

DRUGS (5)
  1. TARGIN [Suspect]
     Active Substance: NALOXONE HYDROCHLORIDE\OXYCODONE HYDROCHLORIDE
     Indication: PRODUCT USED FOR UNKNOWN INDICATION
     Dosage: 840 MG, TOTAL
     Route: 048
     Dates: start: 20170425
  2. RAMIPRIL. [Suspect]
     Active Substance: RAMIPRIL
     Indication: PRODUCT USED FOR UNKNOWN INDICATION
     Dosage: 17.5 MG, TOTAL
     Route: 048
     Dates: start: 20170425
  3. LORAZEPAM. [Suspect]
     Active Substance: LORAZEPAM
     Indication: PRODUCT USED FOR UNKNOWN INDICATION
     Dosage: 19 MG, TOTAL
     Route: 048
     Dates: start: 20170425
  4. COUMADIN [Suspect]
     Active Substance: WARFARIN SODIUM
     Indication: PRODUCT USED FOR UNKNOWN INDICATION
     Dosage: 5 MG, TOTAL
     Route: 048
     Dates: start: 20170425
  5. LAROXYL [Suspect]
     Active Substance: AMITRIPTYLINE
     Indication: PRODUCT USED FOR UNKNOWN INDICATION
     Dosage: 20 ML, TOTAL
     Route: 048
     Dates: start: 20170425

REACTIONS (9)
  - Intentional overdose [Recovered/Resolved]
  - Drug interaction [Unknown]
  - Somnolence [Unknown]
  - Toxicity to various agents [Recovered/Resolved]
  - Gastric lavage [Unknown]
  - Pneumonia [Unknown]
  - Drug use disorder [Recovered/Resolved]
  - Pollakiuria [Recovered/Resolved]
  - Coma [Recovered/Resolved]

NARRATIVE: CASE EVENT DATE: 20170425
